FAERS Safety Report 12329398 (Version 2)
Quarter: 2016Q2

REPORT INFORMATION
  Report Type: Report from Study
  Country: US (occurrence: US)
  Receive Date: 20160503
  Receipt Date: 20160520
  Transmission Date: 20160815
  Serious: Yes (Hospitalization)
  Sender: FDA-Public Use
  Company Number: US-ACTELION-A-US2016-135236

PATIENT
  Age: 65 Year
  Sex: Female

DRUGS (2)
  1. SELEXIPAG [Suspect]
     Active Substance: SELEXIPAG
     Indication: PULMONARY ARTERIAL HYPERTENSION
     Dosage: 200 MCG, BID
     Route: 048
     Dates: start: 201602
  2. TYVASO [Suspect]
     Active Substance: TREPROSTINIL
     Indication: PULMONARY HYPERTENSION
     Dosage: 9 PUFF, QID
     Route: 065

REACTIONS (5)
  - Fluid overload [Unknown]
  - Respiratory disorder [Unknown]
  - Fatigue [Unknown]
  - Dyspnoea [Unknown]
  - Lethargy [Unknown]

NARRATIVE: CASE EVENT DATE: 20160420
